FAERS Safety Report 25097397 (Version 1)
Quarter: 2025Q1

REPORT INFORMATION
  Report Type: Spontaneous
  Country: IT (occurrence: IT)
  Receive Date: 20250320
  Receipt Date: 20250320
  Transmission Date: 20250408
  Serious: Yes (Other)
  Sender: JOHNSON AND JOHNSON
  Company Number: None

PATIENT
  Age: 47 Year
  Sex: Female
  Weight: 93 kg

DRUGS (1)
  1. SIMPONI [Suspect]
     Active Substance: GOLIMUMAB
     Indication: Product used for unknown indication
     Dosage: 100 MG PER MONTH
     Route: 058
     Dates: start: 20180601, end: 20231115

REACTIONS (1)
  - Autoimmune disorder [Recovering/Resolving]

NARRATIVE: CASE EVENT DATE: 20231115
